FAERS Safety Report 17976635 (Version 1)
Quarter: 2020Q3

REPORT INFORMATION
  Report Type: Spontaneous
  Country: NO (occurrence: NO)
  Receive Date: 20200703
  Receipt Date: 20200703
  Transmission Date: 20201103
  Serious: Yes (Hospitalization, Disabling)
  Sender: FDA-Public Use
  Company Number: NO-AMGEN-NORSP2020106290

PATIENT
  Age: 40 Year
  Sex: Male

DRUGS (2)
  1. AIMOVIG [Suspect]
     Active Substance: ERENUMAB-AOOE
     Indication: MIGRAINE
     Dosage: 140 MG, QMO (INJECTION)
     Route: 058
     Dates: start: 20191015, end: 20200315
  2. CANNABIDIOL [Suspect]
     Active Substance: CANNABIDIOL
     Indication: MIGRAINE
     Dosage: UNKNOWN HOW HE GOT THE PRODUCT AND THE DOSE
     Route: 048
     Dates: start: 20200215, end: 20200220

REACTIONS (3)
  - Arthralgia [Recovering/Resolving]
  - Inflammation [Recovering/Resolving]
  - Skin disorder [Recovering/Resolving]

NARRATIVE: CASE EVENT DATE: 20200215
